FAERS Safety Report 19388724 (Version 1)
Quarter: 2021Q2

REPORT INFORMATION
  Report Type: Spontaneous
  Country: US (occurrence: US)
  Receive Date: 20210608
  Receipt Date: 20210608
  Transmission Date: 20210717
  Serious: Yes (Hospitalization, Other)
  Sender: FDA-Public Use
  Company Number: US-BAYER-2021-153644

PATIENT
  Age: 54 Year
  Sex: Male

DRUGS (1)
  1. ALKA?SELTZER PLUS SORE THROAT RELIEF HONEY LEMON FLAVOR [Suspect]
     Active Substance: ACETAMINOPHEN
     Dosage: CHRONIC ACETAMINOPHEN

REACTIONS (2)
  - Alanine aminotransferase increased [Recovering/Resolving]
  - Overdose [Recovering/Resolving]
